FAERS Safety Report 9342291 (Version 2)
Quarter: 2013Q2

REPORT INFORMATION
  Report Type: Spontaneous
  Country: US (occurrence: US)
  Receive Date: 20130611
  Receipt Date: 20130617
  Transmission Date: 20140414
  Serious: No
  Sender: FDA-Public Use
  Company Number: US-009507513-1305USA016687

PATIENT
  Age: 84 Year
  Sex: Female
  Weight: 54.42 kg

DRUGS (11)
  1. CLARITIN LIQUIGELS [Suspect]
     Indication: SEASONAL ALLERGY
     Dosage: 10 MG, QD
     Route: 048
     Dates: start: 20130420, end: 20130425
  2. CLARITIN LIQUIGELS [Suspect]
     Indication: EYE PRURITUS
  3. CLARITIN LIQUIGELS [Suspect]
     Indication: NASAL CONGESTION
  4. CLARITIN LIQUIGELS [Suspect]
     Indication: SNEEZING
  5. CENTRUM SILVER [Concomitant]
     Indication: PRODUCT USED FOR UNKNOWN INDICATION
     Dosage: UNK, UNKNOWN
  6. CALTRATE [Concomitant]
     Indication: PRODUCT USED FOR UNKNOWN INDICATION
     Dosage: UNK, UNKNOWN
  7. NATURE MADE VITAMIN C [Concomitant]
     Indication: PRODUCT USED FOR UNKNOWN INDICATION
     Dosage: UNK, UNKNOWN
  8. NATURE MADE VITAMIN D [Concomitant]
     Indication: PRODUCT USED FOR UNKNOWN INDICATION
     Dosage: UNK, UNKNOWN
  9. CALCIUM (UNSPECIFIED) [Concomitant]
     Indication: PRODUCT USED FOR UNKNOWN INDICATION
     Dosage: UNK, UNKNOWN
  10. VISINE TEARS [Concomitant]
     Indication: DRY EYE
     Dosage: UNK, UNKNOWN
  11. ZADITOR [Concomitant]
     Indication: SEASONAL ALLERGY
     Dosage: UNK, UNKNOWN

REACTIONS (1)
  - Drug ineffective [Unknown]
